FAERS Safety Report 11087505 (Version 1)
Quarter: 2015Q2

REPORT INFORMATION
  Report Type: Spontaneous
  Country: US (occurrence: US)
  Receive Date: 20150504
  Receipt Date: 20150504
  Transmission Date: 20150821
  Serious: Yes (Hospitalization, Other)
  Sender: FDA-Public Use
  Company Number: US-RB PHARMACEUTICALS LIMITED-RB-078645-2015

PATIENT
  Age: 32 Year
  Sex: Female

DRUGS (3)
  1. BUPRENORPHINE [Suspect]
     Active Substance: BUPRENORPHINE
     Indication: DRUG DEPENDENCE
     Dosage: 8MG, TWICE A DAY
     Route: 060
     Dates: start: 2014, end: 201503
  2. MARIJUANA [Suspect]
     Active Substance: CANNABIS SATIVA SUBSP. INDICA TOP
     Indication: PRODUCT USED FOR UNKNOWN INDICATION
     Dosage: UNK
     Route: 065
  3. MELOXICAM. [Concomitant]
     Active Substance: MELOXICAM
     Indication: PAIN
     Dosage: UNK
     Route: 048

REACTIONS (11)
  - Catatonia [Not Recovered/Not Resolved]
  - Drug withdrawal syndrome [Unknown]
  - Drug screen positive [Unknown]
  - Decreased appetite [Not Recovered/Not Resolved]
  - Thirst decreased [Not Recovered/Not Resolved]
  - Rhinorrhoea [Unknown]
  - Abdominal discomfort [Unknown]
  - Drug abuse [Recovered/Resolved]
  - Nausea [Unknown]
  - Depressed mood [Not Recovered/Not Resolved]
  - Intentional product misuse [Recovered/Resolved]

NARRATIVE: CASE EVENT DATE: 2014
